FAERS Safety Report 8863243 (Version 1)
Quarter: 2012Q4

REPORT INFORMATION
  Report Type: Report from Study
  Country: US (occurrence: US)
  Receive Date: 20121025
  Receipt Date: 20121025
  Transmission Date: 20130627
  Serious: No
  Sender: FDA-Public Use
  Company Number: US-ABBOTT-12P-163-0932481-00

PATIENT
  Sex: Female
  Weight: 68.1 kg

DRUGS (10)
  1. LUPRON DEPOT 3.75 MG [Suspect]
     Indication: ENDOMETRIOSIS
     Dates: start: 201203, end: 201204
  2. LYRICA [Concomitant]
     Indication: LYME DISEASE
  3. CLARITHROMYCIN [Concomitant]
     Indication: LYME DISEASE
  4. PROTONIX [Concomitant]
     Indication: LYME DISEASE
  5. SERTRALINE [Concomitant]
     Indication: PRODUCT USED FOR UNKNOWN INDICATION
  6. FLUCONAZOLE [Concomitant]
     Indication: LYME DISEASE
  7. VITAMINS [Concomitant]
     Indication: PRODUCT USED FOR UNKNOWN INDICATION
  8. IRON PILL [Concomitant]
     Indication: PRODUCT USED FOR UNKNOWN INDICATION
  9. ACIDOPHOLUS [Concomitant]
     Indication: PRODUCT USED FOR UNKNOWN INDICATION
  10. AMOXICILLIN [Concomitant]
     Indication: LYME DISEASE

REACTIONS (3)
  - Pelvic pain [Not Recovered/Not Resolved]
  - Hot flush [Recovering/Resolving]
  - Menstrual disorder [Recovered/Resolved]
